FAERS Safety Report 4310318-9 (Version None)
Quarter: 2004Q1

REPORT INFORMATION
  Report Type: 
  Country: None (occurrence: None)
  Receive Date: 20040301
  Receipt Date: 20031119
  Transmission Date: 20041129
  Serious: No
  Sender: FDA-Public Use
  Company Number: WAES 0311USA02246

PATIENT
  Age: 64 Year
  Sex: Female
  Weight: 94.8018 kg

DRUGS (4)
  1. ZETIA [Suspect]
     Indication: HYPERCHOLESTEROLAEMIA
     Dosage: 10 MG/DAILY/PO
     Route: 048
     Dates: start: 20031001, end: 20031001
  2. ZETIA [Suspect]
     Indication: LIPIDS
     Dosage: 10 MG/DAILY/PO
     Route: 048
     Dates: start: 20031001, end: 20031001
  3. SYNTHROID [Concomitant]
  4. ASPIRIN [Concomitant]

REACTIONS (2)
  - FATIGUE [None]
  - MYOPATHY [None]
